FAERS Safety Report 9133581 (Version 1)
Quarter: 2013Q1

REPORT INFORMATION
  Report Type: Spontaneous
  Country: US (occurrence: US)
  Receive Date: 20130301
  Receipt Date: 20130301
  Transmission Date: 20140127
  Serious: No
  Sender: FDA-Public Use
  Company Number: US-ASTRAZENECA-2011SE47723

PATIENT
  Age: 71 Year
  Sex: Female
  Weight: 50.8 kg

DRUGS (7)
  1. SEROQUEL [Suspect]
     Indication: DEPRESSION
     Route: 048
     Dates: start: 2001
  2. OXYBUTIN [Concomitant]
  3. GABAPENTIN [Concomitant]
  4. MIRTZAPINE [Concomitant]
  5. EFFEXOR ER [Concomitant]
  6. SYNTHROID [Concomitant]
  7. TRAZADONE [Concomitant]

REACTIONS (6)
  - Depression [Recovering/Resolving]
  - Insomnia [Unknown]
  - Malaise [Unknown]
  - Malaise [Unknown]
  - Nausea [Unknown]
  - Drug dose omission [Unknown]
